FAERS Safety Report 18076657 (Version 2)
Quarter: 2023Q1

REPORT INFORMATION
  Report Type: Report from Study
  Country: FR (occurrence: FR)
  Receive Date: 20200727
  Receipt Date: 20230119
  Transmission Date: 20230418
  Serious: Yes (Other)
  Sender: FDA-Public Use
  Company Number: FR-JNJFOC-20200711716

PATIENT
  Age: 58 Year
  Sex: Female

DRUGS (3)
  1. DEXAMETHASONE [Suspect]
     Active Substance: DEXAMETHASONE
     Indication: Plasma cell myeloma
     Dosage: 160 MG QW 40 MG/DOSE 4 DOSE/WEEK FOR 0.1 MONTHS
     Route: 065
     Dates: end: 20171107
  2. VELCADE [Suspect]
     Active Substance: BORTEZOMIB
     Indication: Plasma cell myeloma
     Dosage: 4 MG, QW 2 MG/DOSE 2 DOSE/WEEK FOR 0.1 MONTHS
     Route: 065
     Dates: end: 20171107
  3. CYCLOPHOSPHAMIDE [Suspect]
     Active Substance: CYCLOPHOSPHAMIDE
     Indication: Plasma cell myeloma
     Dosage: 300 MG QW 300 MG/DOSE 1 DOSE/WEEK FOR: 0.1 MONTHS
     Route: 065
     Dates: end: 20171107

REACTIONS (3)
  - Septic shock [Unknown]
  - Off label use [Unknown]
  - Product use issue [Unknown]

NARRATIVE: CASE EVENT DATE: 20171107
